FAERS Safety Report 25215944 (Version 1)
Quarter: 2025Q2

REPORT INFORMATION
  Report Type: Spontaneous
  Country: FR (occurrence: FR)
  Receive Date: 20250418
  Receipt Date: 20250418
  Transmission Date: 20250716
  Serious: Yes (Other)
  Sender: SK LIFE SCIENCE
  Company Number: None

PATIENT

DRUGS (4)
  1. XCOPRI [Suspect]
     Active Substance: CENOBAMATE
     Indication: Epilepsy
     Dosage: 200 MILLIGRAM
     Route: 048
     Dates: start: 20240715
  2. KEPPRA [Concomitant]
     Active Substance: LEVETIRACETAM
     Indication: Product used for unknown indication
     Route: 065
  3. FYCOMPA [Concomitant]
     Active Substance: PERAMPANEL
     Indication: Product used for unknown indication
     Route: 065
  4. TOPIRAMATE [Concomitant]
     Active Substance: TOPIRAMATE
     Indication: Product used for unknown indication
     Route: 065

REACTIONS (2)
  - Eosinophilia [Not Recovered/Not Resolved]
  - Rash [Not Recovered/Not Resolved]

NARRATIVE: CASE EVENT DATE: 20250223
